FAERS Safety Report 8129830-X (Version None)
Quarter: 2012Q1

REPORT INFORMATION
  Report Type: 
  Country: None (occurrence: None)
  Receive Date: 20120103
  Receipt Date: 20111120
  Transmission Date: 20120608
  Serious: No
  Sender: FDA-Public Use
  Company Number: AE-2011-003781

PATIENT
  Age: 56 Year
  Sex: Male

DRUGS (7)
  1. PEGASYS [Concomitant]
  2. PRILOSEC [Concomitant]
  3. FLOMAX [Concomitant]
  4. PRINIVIL [Concomitant]
  5. METFORMIN HCL [Concomitant]
  6. RIBAVIRIN [Concomitant]
  7. INCIVEK [Suspect]
     Dosage: 1500 MG (750 MG, 2 IN 1 D)
     Dates: start: 20110920

REACTIONS (1)
  - RASH PRURITIC [None]
